FAERS Safety Report 5311745-3 (Version None)
Quarter: 2007Q2

REPORT INFORMATION
  Report Type: 
  Country: None (occurrence: None)
  Receive Date: 20070430
  Receipt Date: 20070420
  Transmission Date: 20071010
  Serious: Yes (Other)
  Sender: FDA-Public Use
  Company Number: US-ROCHE-494193

PATIENT
  Age: 51 Year
  Sex: Female

DRUGS (2)
  1. PEGASYS [Suspect]
     Route: 065
     Dates: start: 20060101, end: 20070420
  2. COPEGUS [Suspect]
     Route: 048
     Dates: start: 20060101, end: 20070420

REACTIONS (6)
  - ANAEMIA [None]
  - DRY EYE [None]
  - EYE DISORDER [None]
  - EYE PAIN [None]
  - KERATITIS [None]
  - VISION BLURRED [None]
